FAERS Safety Report 8245865-0 (Version None)
Quarter: 2012Q1

REPORT INFORMATION
  Report Type: 
  Country: None (occurrence: None)
  Receive Date: 20120328
  Receipt Date: 20120328
  Transmission Date: 20120608
  Serious: Yes (Other)
  Sender: FDA-Public Use
  Company Number: None

PATIENT
  Sex: Female
  Weight: 129.5 kg

DRUGS (7)
  1. SUBOXONE [Suspect]
     Indication: DRUG DEPENDENCE
     Dosage: 2 ALTERNATING W/ 3 FILMS DAILY SUBLINGUAL
     Route: 060
     Dates: start: 20110218
  2. METFORMIN HCL [Concomitant]
  3. SIMVASTATIN [Concomitant]
  4. CYMBALTA [Concomitant]
  5. LISINOPRIL [Concomitant]
  6. FUROSEMIDE [Concomitant]
  7. OMEPRAZOLE [Concomitant]

REACTIONS (3)
  - NAUSEA [None]
  - PRODUCT SUBSTITUTION ISSUE [None]
  - VOMITING [None]
